FAERS Safety Report 9377902 (Version 1)
Quarter: 2013Q2

REPORT INFORMATION
  Report Type: Spontaneous
  Country: GB (occurrence: None)
  Receive Date: 20130625
  Receipt Date: 20130625
  Transmission Date: 20140414
  Serious: Yes (Hospitalization, Other)
  Sender: FDA-Public Use
  Company Number: CL-497-2013

PATIENT
  Age: 74 Year
  Sex: Female

DRUGS (3)
  1. FLUCONAZOL [Suspect]
  2. IPRATROPIUM [Suspect]
     Dates: start: 20130416
  3. OMEPRAZOLE [Suspect]

REACTIONS (1)
  - Hypernatraemia [None]
